FAERS Safety Report 6126012-8 (Version None)
Quarter: 2009Q1

REPORT INFORMATION
  Report Type: 
  Country: None (occurrence: None)
  Receive Date: 20090320
  Receipt Date: 20090313
  Transmission Date: 20090719
  Serious: Yes (Hospitalization)
  Sender: FDA-Public Use
  Company Number: AU-ASTRAZENECA-2009AP01924

PATIENT
  Age: 20 Year
  Sex: Male

DRUGS (4)
  1. SEROQUEL [Suspect]
     Route: 048
  2. SEROQUEL [Suspect]
     Route: 055
     Dates: start: 20090312, end: 20090312
  3. DEXAMPHETAMINE [Concomitant]
  4. CELAPRAM [Concomitant]

REACTIONS (2)
  - CONVULSION [None]
  - DRUG ABUSE [None]
